FAERS Safety Report 14226306 (Version 2)
Quarter: 2018Q1

REPORT INFORMATION
  Report Type: Spontaneous
  Country: IN (occurrence: IN)
  Receive Date: 20171127
  Receipt Date: 20180105
  Transmission Date: 20180508
  Serious: Yes (Death, Hospitalization)
  Sender: FDA-Public Use
  Company Number: IN-PFIZER INC-2017443813

PATIENT
  Age: 16 Year
  Sex: Male
  Weight: 39 kg

DRUGS (1)
  1. ATGAM [Suspect]
     Active Substance: EQUINE THYMOCYTE IMMUNE GLOBULIN
     Indication: APLASTIC ANAEMIA
     Dosage: 250 MG, 25 VIALS
     Route: 042
     Dates: start: 201710

REACTIONS (3)
  - Pain [Unknown]
  - Infection [Fatal]
  - Pyrexia [Unknown]

NARRATIVE: CASE EVENT DATE: 201710
